FAERS Safety Report 8983105 (Version 1)
Quarter: 2012Q4

REPORT INFORMATION
  Report Type: 
  Country: AU (occurrence: AU)
  Receive Date: 20121224
  Receipt Date: 20121224
  Transmission Date: 20130627
  Serious: Yes (Other)
  Sender: FDA-Public Use
  Company Number: AU-AMGEN-AUSSP2012072604

PATIENT
  Age: 74 Year
  Sex: Female

DRUGS (1)
  1. PROLIA [Suspect]
     Indication: OSTEOPOROSIS
     Dosage: UNK
     Dates: start: 20121019

REACTIONS (7)
  - Osteonecrosis [Unknown]
  - Pain [Not Recovered/Not Resolved]
  - Dyskinesia [Recovering/Resolving]
  - Restless legs syndrome [Recovering/Resolving]
  - Arthritis [Unknown]
  - Tendonitis [Unknown]
  - Pain in extremity [Not Recovered/Not Resolved]
